FAERS Safety Report 18318547 (Version 1)
Quarter: 2020Q3

REPORT INFORMATION
  Report Type: Spontaneous
  Country: US (occurrence: US)
  Receive Date: 20200927
  Receipt Date: 20200927
  Transmission Date: 20201103
  Serious: Yes (Life-Threatening)
  Sender: FDA-Public Use
  Company Number: None

PATIENT
  Age: 49 Year
  Sex: Female
  Weight: 87.75 kg

DRUGS (6)
  1. EQUATE LAXATIVE [SENNOSIDES] [Suspect]
     Active Substance: SENNOSIDES
     Indication: CONSTIPATION
     Route: 048
  2. SUBOXONE [Concomitant]
     Active Substance: BUPRENORPHINE HYDROCHLORIDE\NALOXONE HYDROCHLORIDE
  3. METOPROLOL 25 MG [Concomitant]
     Active Substance: METOPROLOL
  4. LISINIOPRIL?HCTZ [Concomitant]
  5. ZOLOFT 50 MG [Concomitant]
  6. STOOL SOFTENER PLUS STIMULANT LAXATIVE [Suspect]
     Active Substance: DOCUSATE SODIUM\SENNOSIDES
     Indication: CONSTIPATION
     Route: 048

REACTIONS (4)
  - Heart rate increased [None]
  - Dyspnoea [None]
  - Retching [None]
  - Hyperhidrosis [None]

NARRATIVE: CASE EVENT DATE: 20200926
